FAERS Safety Report 16016208 (Version 1)
Quarter: 2019Q1

REPORT INFORMATION
  Report Type: Report from Study
  Country: None (occurrence: RO)
  Receive Date: 20190228
  Receipt Date: 20190228
  Transmission Date: 20190418
  Serious: Yes (Hospitalization)
  Sender: FDA-Public Use
  Company Number: RO-ABBVIE-19K-135-2682609-00

PATIENT
  Age: 68 Year
  Sex: Male

DRUGS (5)
  1. SILYMARIN [Concomitant]
     Active Substance: DIETARY SUPPLEMENT\HERBALS\MILK THISTLE
     Indication: HEPATIC STEATOSIS
     Route: 048
     Dates: start: 2012
  2. CRESTOR [Concomitant]
     Active Substance: ROSUVASTATIN CALCIUM
     Indication: BLOOD TRIGLYCERIDES INCREASED
     Route: 048
  3. HUMIRA [Suspect]
     Active Substance: ADALIMUMAB
     Indication: PSORIASIS
     Route: 058
     Dates: start: 20130915, end: 20190211
  4. TYLENOL [Concomitant]
     Active Substance: ACETAMINOPHEN
     Indication: BLOOD TRIGLYCERIDES INCREASED
     Route: 048
  5. OMEGA 3 [Concomitant]
     Active Substance: OMEGA-3 FATTY ACIDS
     Indication: BLOOD TRIGLYCERIDES INCREASED
     Route: 048
     Dates: start: 2014

REACTIONS (5)
  - Blood triglycerides increased [Not Recovered/Not Resolved]
  - Speech disorder [Recovered/Resolved]
  - Nasopharyngitis [Recovering/Resolving]
  - Hypertension [Not Recovered/Not Resolved]
  - Cerebrovascular accident [Recovered/Resolved]

NARRATIVE: CASE EVENT DATE: 2016
